FAERS Safety Report 4651244-5 (Version None)
Quarter: 2005Q2

REPORT INFORMATION
  Report Type: 
  Country: None (occurrence: None)
  Receive Date: 20050503
  Receipt Date: 20050429
  Transmission Date: 20051028
  Serious: Yes (Disabling, Other)
  Sender: FDA-Public Use
  Company Number: PHBS2005CH06144

PATIENT
  Age: 62 Year
  Sex: Male

DRUGS (8)
  1. MIDAZOLAM HCL [Concomitant]
     Indication: SLEEP DISORDER
     Dosage: 1 DF, QD
     Route: 048
  2. ZURCAL [Concomitant]
     Indication: GASTRIC ULCER
     Dosage: 40 MG/D
  3. PROSTA URGENIN [Concomitant]
     Indication: MICTURITION DISORDER
  4. NIFEDIPINE [Concomitant]
     Indication: HYPERTENSION
     Dosage: 50 MG/D
  5. GEMZAR [Concomitant]
     Indication: SMALL CELL LUNG CANCER EXTENSIVE STAGE
     Route: 042
     Dates: end: 20041012
  6. OXALIPLATIN [Concomitant]
     Indication: SMALL CELL LUNG CANCER EXTENSIVE STAGE
     Route: 042
     Dates: end: 20041012
  7. DIPYRONE TAB [Concomitant]
     Indication: PAIN
     Dosage: 500 MG/DAY
  8. ZOMETA [Suspect]
     Indication: METASTASES TO BONE
     Dosage: 4 MG, QMO
     Dates: start: 20040507, end: 20050221

REACTIONS (1)
  - ASEPTIC NECROSIS BONE [None]
